FAERS Safety Report 17934705 (Version 1)
Quarter: 2020Q2

REPORT INFORMATION
  Report Type: Spontaneous
  Country: US (occurrence: US)
  Receive Date: 20200623
  Receipt Date: 20200623
  Transmission Date: 20200714
  Serious: Yes (Disabling)
  Sender: FDA-Public Use
  Company Number: None

PATIENT
  Age: 51 Year
  Sex: Female
  Weight: 63 kg

DRUGS (1)
  1. KEEP CLEAN ADVANCED HAND SANITIZER 12OZ [Suspect]
     Active Substance: ALCOHOL
     Indication: ANTIBIOTIC THERAPY
     Route: 061
     Dates: start: 20200510, end: 20200619

REACTIONS (4)
  - Headache [None]
  - Arthralgia [None]
  - Product formulation issue [None]
  - Diarrhoea [None]

NARRATIVE: CASE EVENT DATE: 20200524
